FAERS Safety Report 4416530-2 (Version None)
Quarter: 2004Q3

REPORT INFORMATION
  Report Type: 
  Country: None (occurrence: None)
  Receive Date: 20040802
  Receipt Date: 20040715
  Transmission Date: 20050211
  Serious: Yes (Hospitalization)
  Sender: FDA-Public Use
  Company Number: DSA_24701_2004

PATIENT
  Age: 65 Year

DRUGS (1)
  1. DILTIAZEM HYDROCHLORIDE [Suspect]
     Dosage: 300 MG Q DAY PO
     Route: 048

REACTIONS (1)
  - SINUS ARRHYTHMIA [None]
